FAERS Safety Report 15736436 (Version 1)
Quarter: 2018Q4

REPORT INFORMATION
  Report Type: Report from Study
  Country: MX (occurrence: MX)
  Receive Date: 20181218
  Receipt Date: 20181218
  Transmission Date: 20190205
  Serious: Yes (Disabling, Other)
  Sender: FDA-Public Use
  Company Number: MX-BAYER-2018-124901

PATIENT
  Age: 49 Year
  Sex: Female
  Weight: 52 kg

DRUGS (4)
  1. STIVARGA [Suspect]
     Active Substance: REGORAFENIB
     Indication: COLORECTAL CANCER
     Dosage: 120 MG, QD
     Dates: start: 20170601
  2. MORPHINE [Concomitant]
     Active Substance: MORPHINE
  3. STIVARGA [Suspect]
     Active Substance: REGORAFENIB
     Indication: COLORECTAL CANCER
     Dosage: 160 MG DAILY
     Dates: start: 20170430
  4. TRAMADOL. [Suspect]
     Active Substance: TRAMADOL
     Indication: PAIN
     Dosage: UNK

REACTIONS (38)
  - Tooth extraction [Not Recovered/Not Resolved]
  - Abdominal pain upper [Not Recovered/Not Resolved]
  - Influenza [Not Recovered/Not Resolved]
  - Cystostomy [Not Recovered/Not Resolved]
  - Tearfulness [Not Recovered/Not Resolved]
  - Ageusia [Not Recovered/Not Resolved]
  - Abdominal discomfort [Not Recovered/Not Resolved]
  - Burning sensation [Recovering/Resolving]
  - Pain [Not Recovered/Not Resolved]
  - Drug ineffective [None]
  - Oral mucosal blistering [Not Recovered/Not Resolved]
  - Gingival blister [Not Recovered/Not Resolved]
  - Glossodynia [Not Recovered/Not Resolved]
  - Urinary tract infection [None]
  - Headache [Not Recovered/Not Resolved]
  - Abdominal pain [Recovered/Resolved with Sequelae]
  - Back pain [Not Recovered/Not Resolved]
  - Cough [Not Recovered/Not Resolved]
  - Oral herpes [Not Recovered/Not Resolved]
  - Abdominal pain [Not Recovered/Not Resolved]
  - Skin exfoliation [Recovering/Resolving]
  - Abdominal pain upper [Not Recovered/Not Resolved]
  - Anger [Recovered/Resolved]
  - Abdominal pain upper [Recovering/Resolving]
  - Pain in extremity [Recovering/Resolving]
  - Fatigue [Not Recovered/Not Resolved]
  - Fatigue [Not Recovered/Not Resolved]
  - Procedural pain [None]
  - Tumour pain [Not Recovered/Not Resolved]
  - Tongue discomfort [Not Recovered/Not Resolved]
  - Stomatitis [None]
  - Blood glucose increased [Not Recovered/Not Resolved]
  - Colostomy [Not Recovered/Not Resolved]
  - Wound haemorrhage [Not Recovered/Not Resolved]
  - Procedural pain [Not Recovered/Not Resolved]
  - Abdominal distension [Not Recovered/Not Resolved]
  - Blood urine present [Recovered/Resolved with Sequelae]
  - Musculoskeletal chest pain [Not Recovered/Not Resolved]

NARRATIVE: CASE EVENT DATE: 20170601
